FAERS Safety Report 25049256 (Version 2)
Quarter: 2025Q2

REPORT INFORMATION
  Report Type: Spontaneous
  Country: JP (occurrence: JP)
  Receive Date: 20250307
  Receipt Date: 20250523
  Transmission Date: 20250716
  Serious: Yes (Other)
  Sender: ROCHE
  Company Number: JP-CHUGAI-2025006860

PATIENT
  Age: 78 Year
  Sex: Female

DRUGS (4)
  1. PHESGO [Suspect]
     Active Substance: HYALURONIDASE-ZZXF\PERTUZUMAB\TRASTUZUMAB
     Indication: HER2 positive breast cancer
     Dosage: IN 15 ML (FULL DOSE), ONCE/3WEEKS
     Route: 058
     Dates: end: 20250106
  2. PHESGO [Suspect]
     Active Substance: HYALURONIDASE-ZZXF\PERTUZUMAB\TRASTUZUMAB
     Dosage: IN 15 ML (FULL DOSE), ONCE/3WEEKS
     Route: 058
     Dates: start: 20250127, end: 2025
  3. PHESGO [Suspect]
     Active Substance: HYALURONIDASE-ZZXF\PERTUZUMAB\TRASTUZUMAB
     Dosage: IN 15 ML (FULL DOSE), ONCE/3WEEKS
     Route: 058
     Dates: end: 20250310
  4. PACLITAXEL [Concomitant]
     Active Substance: PACLITAXEL
     Indication: HER2 positive breast cancer
     Dosage: UNK, ONCE/WEEK
     Route: 042

REACTIONS (3)
  - Dysphonia [Recovered/Resolved]
  - Pharyngeal erythema [Unknown]
  - Epistaxis [Recovered/Resolved]

NARRATIVE: CASE EVENT DATE: 20250206
